FAERS Safety Report 16275649 (Version 2)
Quarter: 2019Q2

REPORT INFORMATION
  Report Type: Spontaneous
  Country: CN (occurrence: CN)
  Receive Date: 20190506
  Receipt Date: 20190606
  Transmission Date: 20190711
  Serious: Yes (Other)
  Sender: FDA-Public Use
  Company Number: CN-ROCHE-2305782

PATIENT
  Age: 64 Year
  Sex: Female

DRUGS (13)
  1. CAPECITABINE. [Suspect]
     Active Substance: CAPECITABINE
     Indication: ADENOCARCINOMA OF COLON
     Dosage: FROM DAY1 TO DAY14
     Route: 048
     Dates: start: 20160504, end: 20160727
  2. FLUOROURACIL. [Suspect]
     Active Substance: FLUOROURACIL
     Route: 042
     Dates: start: 20170514
  3. OXALIPLATIN. [Suspect]
     Active Substance: OXALIPLATIN
     Indication: ADENOCARCINOMA OF COLON
     Dosage: VD AT DAY 1
     Route: 042
     Dates: start: 20170915, end: 20180115
  4. RALTITREXED [Concomitant]
     Active Substance: RALTITREXED
     Indication: ADENOCARCINOMA OF COLON
     Dosage: VD
     Route: 065
     Dates: start: 201806
  5. FLUOROURACIL. [Suspect]
     Active Substance: FLUOROURACIL
     Route: 042
     Dates: start: 20160108, end: 20160412
  6. IRINOTECAN [Concomitant]
     Active Substance: IRINOTECAN
     Indication: ADENOCARCINOMA OF COLON
     Dosage: DAY1
     Route: 065
     Dates: start: 20170514
  7. CALCIUM FOLINATE [Suspect]
     Active Substance: LEUCOVORIN CALCIUM
     Route: 065
     Dates: start: 20160108, end: 20160412
  8. CALCIUM FOLINATE [Suspect]
     Active Substance: LEUCOVORIN CALCIUM
     Dosage: 0.5 VD AT D1
     Route: 065
     Dates: start: 20170514
  9. BEVACIZUMAB. [Suspect]
     Active Substance: BEVACIZUMAB
     Indication: ADENOCARCINOMA OF COLON
     Dosage: VD AT DAY1
     Route: 042
     Dates: start: 20170915, end: 20180115
  10. FLUOROURACIL. [Suspect]
     Active Substance: FLUOROURACIL
     Indication: ADENOCARCINOMA OF COLON
     Dosage: AT DAY 1
     Route: 042
     Dates: start: 20170915, end: 20180115
  11. FLUOROURACIL. [Suspect]
     Active Substance: FLUOROURACIL
     Dosage: 3.75 MICROPUMP FOR 46 HOURS
     Route: 042
     Dates: start: 20170514
  12. CALCIUM FOLINATE [Suspect]
     Active Substance: LEUCOVORIN CALCIUM
     Indication: ADENOCARCINOMA OF COLON
     Dosage: VD AT DAY 1
     Route: 065
     Dates: start: 20170915, end: 20180115
  13. OXALIPLATIN. [Suspect]
     Active Substance: OXALIPLATIN
     Route: 042
     Dates: start: 20160108, end: 20160412

REACTIONS (9)
  - Anaemia [Unknown]
  - Gastrointestinal inflammation [Unknown]
  - Oral disorder [Unknown]
  - Bone marrow failure [Recovering/Resolving]
  - Mouth ulceration [Recovering/Resolving]
  - Proctitis [Unknown]
  - Gastrointestinal haemorrhage [Recovering/Resolving]
  - Hypoaesthesia [Recovering/Resolving]
  - Diarrhoea [Recovering/Resolving]

NARRATIVE: CASE EVENT DATE: 20170512
